FAERS Safety Report 10993485 (Version 2)
Quarter: 2015Q2

REPORT INFORMATION
  Report Type: Report from Study
  Country: US (occurrence: US)
  Receive Date: 20150407
  Receipt Date: 20150522
  Transmission Date: 20150821
  Serious: Yes (Death)
  Sender: FDA-Public Use
  Company Number: US-ROCHE-1560875

PATIENT
  Age: 74 Year
  Sex: Male
  Weight: 89.3 kg

DRUGS (3)
  1. BEVACIZUMAB [Suspect]
     Active Substance: BEVACIZUMAB
     Indication: GLIOBLASTOMA
     Dosage: LAST DOSE PRIOR TO SAE: 06/NOV/2012
     Route: 042
     Dates: start: 20121023
  2. ENOXAPARIN [Concomitant]
     Active Substance: ENOXAPARIN
     Route: 065
     Dates: start: 20121003, end: 20121108
  3. TEMOZOLOMIDE. [Suspect]
     Active Substance: TEMOZOLOMIDE
     Indication: GLIOBLASTOMA
     Dosage: LAST DOSE PRIOR TO SAE: 27/OCT/2012
     Route: 065
     Dates: start: 20121023

REACTIONS (2)
  - Gastrointestinal perforation [Fatal]
  - Sepsis [Fatal]

NARRATIVE: CASE EVENT DATE: 20121108
